FAERS Safety Report 20077855 (Version 1)
Quarter: 2021Q4

REPORT INFORMATION
  Report Type: Spontaneous
  Country: DE (occurrence: DE)
  Receive Date: 20211116
  Receipt Date: 20211116
  Transmission Date: 20220303
  Serious: Yes (Hospitalization)
  Sender: FDA-Public Use
  Company Number: DE-ADRED-07035-01

PATIENT
  Age: 83 Year
  Sex: Male

DRUGS (9)
  1. BENSERAZIDE\LEVODOPA [Suspect]
     Active Substance: BENSERAZIDE\LEVODOPA
     Indication: Product used for unknown indication
     Dosage: UNK (25|100 MG, 5X, KAPSELN)
     Route: 048
  2. RASAGILINE MESYLATE [Suspect]
     Active Substance: RASAGILINE MESYLATE
     Indication: Product used for unknown indication
     Dosage: 1 MILLIGRAM, QD (1-0-0-0, TABLETTEN)
     Route: 048
  3. ENTACAPONE [Suspect]
     Active Substance: ENTACAPONE
     Indication: Product used for unknown indication
     Dosage: 200 MILLIGRAM, 5X (TABLETTEN)
     Route: 048
  4. BROMAZEPAM [Concomitant]
     Active Substance: BROMAZEPAM
     Dosage: 6 MILLIGRAM (BEDARF, TABLETTEN)
     Route: 048
  5. BISOPROLOL [Concomitant]
     Active Substance: BISOPROLOL
     Dosage: 2.5 MILLIGRAM, QD (1-0-0-0, TABLETTEN)
     Route: 048
  6. CANDESARTAN [Concomitant]
     Active Substance: CANDESARTAN
     Dosage: 32 MILLIGRAM, QD (0-0-1-0, TABLETTEN)
     Route: 048
  7. TAMSULOSIN [Concomitant]
     Active Substance: TAMSULOSIN
     Dosage: 0.4 MILLIGRAM, QD ( 0-0-1-0, RETARD-TABLETTEN)
     Route: 048
  8. KALIUM MAGNESIUM                   /01412401/ [Concomitant]
     Dosage: UNK (117.3|36.5 MG, 2-0-2-0, TABLETTEN)
     Route: 048
  9. AMANTADIN                          /00055901/ [Concomitant]
     Dosage: 100 MILLIGRAM, QD (100 MG, 1-0-0-0, TABLETTEN)
     Route: 048

REACTIONS (3)
  - Dysuria [Recovering/Resolving]
  - Diarrhoea [Recovering/Resolving]
  - Nausea [Recovering/Resolving]
